FAERS Safety Report 4583689-6 (Version None)
Quarter: 2005Q1

REPORT INFORMATION
  Report Type: 
  Country: None (occurrence: None)
  Receive Date: 20050216
  Receipt Date: 20050204
  Transmission Date: 20050727
  Serious: Yes (Hospitalization)
  Sender: FDA-Public Use
  Company Number: FR-BRISTOL-MYERS SQUIBB COMPANY-12862165

PATIENT
  Age: 39 Year
  Sex: Male
  Weight: 60 kg

DRUGS (11)
  1. ENDOXAN [Suspect]
     Indication: BURKITT'S LYMPHOMA
     Route: 042
     Dates: start: 20050113, end: 20050113
  2. METHOTREXATE [Suspect]
     Indication: BURKITT'S LYMPHOMA
     Route: 037
     Dates: start: 20050113, end: 20050113
  3. BLEOMYCIN [Suspect]
     Indication: BURKITT'S LYMPHOMA
     Route: 042
     Dates: start: 20050113, end: 20050113
  4. ADRIBLASTINE [Suspect]
     Indication: BURKITT'S LYMPHOMA
     Route: 042
     Dates: start: 20050113, end: 20050113
  5. ELDISINE [Suspect]
     Indication: BURKITT'S LYMPHOMA
     Route: 042
     Dates: start: 20050113, end: 20050113
  6. CORTICOSTEROID [Concomitant]
     Dosage: DAYS 1 TO 5
     Dates: start: 20050113, end: 20050117
  7. DEPO-MEDROL [Concomitant]
     Route: 037
     Dates: start: 20050113
  8. ZIAGEN [Concomitant]
     Dates: start: 20041228
  9. KALETRA [Concomitant]
     Dates: start: 20041228
  10. EMTRIVA [Concomitant]
     Dates: start: 20041228
  11. BACTRIM [Concomitant]
     Dates: start: 20041223

REACTIONS (3)
  - DIARRHOEA [None]
  - MUCOSAL INFLAMMATION [None]
  - PANCYTOPENIA [None]
